FAERS Safety Report 4808929-7 (Version None)
Quarter: 2005Q4

REPORT INFORMATION
  Report Type: 
  Country: None (occurrence: None)
  Receive Date: 20051021
  Receipt Date: 20040510
  Transmission Date: 20060501
  Serious: No
  Sender: FDA-Public Use
  Company Number: DE_040513568

PATIENT
  Age: 33 Year
  Sex: Female
  Weight: 68 kg

DRUGS (8)
  1. ZYPREXA [Suspect]
     Indication: SCHIZOPHRENIA
     Dosage: 15 MG DAY
     Dates: start: 20040430
  2. HALDOL [Concomitant]
  3. DIAZEPAM [Concomitant]
  4. FLUANXOL (FLUPENTIXOL DECANOATE) [Concomitant]
  5. JODID 200 (JODID 200) [Concomitant]
  6. CYTOBION (CYANOCOBALAMIN ) [Concomitant]
  7. LAKTULOSE (LACTULOSE) [Concomitant]
  8. FOLIC ACID [Concomitant]

REACTIONS (8)
  - ANAEMIA [None]
  - CAESAREAN SECTION [None]
  - DRUG EXPOSURE DURING PREGNANCY [None]
  - GLYCOSURIA DURING PREGNANCY [None]
  - LEUKOCYTOSIS [None]
  - URINARY TRACT INFECTION [None]
  - VULVOVAGINAL MYCOTIC INFECTION [None]
  - WEIGHT INCREASED [None]
